FAERS Safety Report 6741400-4 (Version None)
Quarter: 2010Q2

REPORT INFORMATION
  Report Type: 
  Country: None (occurrence: None)
  Receive Date: 20100526
  Receipt Date: 20100517
  Transmission Date: 20101027
  Serious: Yes (Death)
  Sender: FDA-Public Use
  Company Number: FR-BRISTOL-MYERS SQUIBB COMPANY-15116676

PATIENT
  Age: 53 Year
  Sex: Male

DRUGS (4)
  1. ERBITUX [Suspect]
     Indication: RECTAL CANCER
     Route: 042
     Dates: start: 20090806, end: 20090917
  2. CAMPTOSAR [Suspect]
     Indication: RECTAL CANCER
     Dosage: FORM: SOLN FOR INJ.
     Route: 042
     Dates: start: 20090806, end: 20090910
  3. AVASTIN [Suspect]
     Indication: RECTAL CANCER
     Dates: start: 20081013, end: 20090420
  4. VOTRIENT [Concomitant]
     Dosage: TABS
     Route: 048
     Dates: start: 20090807, end: 20090924

REACTIONS (2)
  - PELVIC SEPSIS [None]
  - PERINEAL INFECTION [None]
